FAERS Safety Report 19750385 (Version 1)
Quarter: 2021Q3

REPORT INFORMATION
  Report Type: Spontaneous
  Country: US (occurrence: US)
  Receive Date: 20210826
  Receipt Date: 20210826
  Transmission Date: 20211014
  Serious: No
  Sender: FDA-Public Use
  Company Number: None

PATIENT
  Age: 57 Year
  Sex: Female
  Weight: 167.58 kg

DRUGS (22)
  1. ACTOS [Concomitant]
     Active Substance: PIOGLITAZONE HYDROCHLORIDE
  2. GABAPENTIN. [Concomitant]
     Active Substance: GABAPENTIN
  3. PROZAC [Concomitant]
     Active Substance: FLUOXETINE HYDROCHLORIDE
  4. RANEXA [Concomitant]
     Active Substance: RANOLAZINE
  5. ATORVASTATIN [Concomitant]
     Active Substance: ATORVASTATIN
  6. TASIGNA [Suspect]
     Active Substance: NILOTINIB
     Indication: CHRONIC MYELOID LEUKAEMIA
     Route: 048
     Dates: start: 20210806
  7. LANTUS [Concomitant]
     Active Substance: INSULIN GLARGINE
  8. LISINOPRIL. [Concomitant]
     Active Substance: LISINOPRIL
  9. ALLEGRA [Concomitant]
     Active Substance: FEXOFENADINE HYDROCHLORIDE
  10. ATIVAN [Concomitant]
     Active Substance: LORAZEPAM
  11. METFORMIN [Concomitant]
     Active Substance: METFORMIN HYDROCHLORIDE
  12. SINGULAIR [Concomitant]
     Active Substance: MONTELUKAST SODIUM
  13. SOTALOL. [Concomitant]
     Active Substance: SOTALOL
  14. ADVAIR HFA [Concomitant]
     Active Substance: FLUTICASONE PROPIONATE\SALMETEROL XINAFOATE
  15. MYRBETRIQ [Concomitant]
     Active Substance: MIRABEGRON
  16. LASIX [Concomitant]
     Active Substance: FUROSEMIDE
  17. POTASSIUM [Concomitant]
     Active Substance: POTASSIUM
  18. TRAMADOL. [Concomitant]
     Active Substance: TRAMADOL
  19. COUMADIN [Concomitant]
     Active Substance: WARFARIN SODIUM
  20. FOLIC ACID. [Concomitant]
     Active Substance: FOLIC ACID
  21. NITROGLYCERIN. [Concomitant]
     Active Substance: NITROGLYCERIN
  22. PRILOSEC [Concomitant]
     Active Substance: OMEPRAZOLE MAGNESIUM

REACTIONS (2)
  - Nausea [None]
  - Fatigue [None]

NARRATIVE: CASE EVENT DATE: 20210826
